FAERS Safety Report 8574617-7 (Version None)
Quarter: 2012Q3

REPORT INFORMATION
  Report Type: 
  Country: None (occurrence: None)
  Receive Date: 20120807
  Receipt Date: 20120726
  Transmission Date: 20120928
  Serious: Yes (Hospitalization, Other)
  Sender: FDA-Public Use
  Company Number: FI-AMGEN-FINSP2012047655

PATIENT
  Age: 29 Year
  Sex: Female

DRUGS (4)
  1. HUMIRA [Suspect]
     Indication: ANKYLOSING SPONDYLITIS
     Dosage: 40 MG ONCE IN 2 WEEKS
     Route: 058
     Dates: start: 20120308, end: 20120403
  2. MOBIC [Concomitant]
     Indication: ANKYLOSING SPONDYLITIS
     Dosage: 15 MG, AS NEEDED 1X/DAY
     Route: 048
  3. SULFASALAZINE [Concomitant]
     Indication: ANKYLOSING SPONDYLITIS
     Dosage: 500 MG, 2 TABLETS 2X/DAY
     Route: 048
  4. ENBREL [Suspect]
     Indication: ANKYLOSING SPONDYLITIS
     Dosage: 50 MG, WEEKLY
     Route: 058
     Dates: start: 20120426, end: 20120523

REACTIONS (3)
  - DIZZINESS [None]
  - DIPLOPIA [None]
  - DEMYELINATION [None]
